FAERS Safety Report 10012794 (Version 1)
Quarter: 2014Q1

REPORT INFORMATION
  Report Type: Spontaneous
  Country: CA (occurrence: CA)
  Receive Date: 20140314
  Receipt Date: 20140314
  Transmission Date: 20141002
  Serious: Yes (Other)
  Sender: FDA-Public Use
  Company Number: CA-ACTAVIS-2014-04805

PATIENT
  Age: 68 Year
  Sex: Female
  Weight: 86 kg

DRUGS (2)
  1. LETROZOLE (UNKNOWN) [Suspect]
     Indication: PRODUCT USED FOR UNKNOWN INDICATION
     Dosage: 25 MICROGRAM, DAILY
     Route: 048
  2. DENOSUMAB [Suspect]
     Indication: PRODUCT USED FOR UNKNOWN INDICATION
     Dosage: 1 DF, ONCE A MONTH
     Route: 058

REACTIONS (6)
  - Ankle fracture [Recovered/Resolved]
  - Anxiety [Recovered/Resolved]
  - Clavicle fracture [Recovered/Resolved]
  - Fall [Recovered/Resolved]
  - Laceration [Recovered/Resolved]
  - Radius fracture [Recovered/Resolved]
